FAERS Safety Report 24764457 (Version 2)
Quarter: 2024Q4

REPORT INFORMATION
  Report Type: Report from Study
  Country: SE (occurrence: SE)
  Receive Date: 20241223
  Receipt Date: 20241230
  Transmission Date: 20250115
  Serious: Yes (Other)
  Sender: AUROBINDO
  Company Number: SE-ORIFARM-032423

PATIENT
  Age: 23 Year
  Sex: Female

DRUGS (2)
  1. SERTRALINE [Suspect]
     Active Substance: SERTRALINE HYDROCHLORIDE
     Indication: Depression
     Dosage: SERTRALINE TREATMENT BEFORE SYMPTOM ONSET FOR 7 YEARS
     Route: 065
  2. SERTRALINE [Suspect]
     Active Substance: SERTRALINE HYDROCHLORIDE
     Indication: Antidepressant therapy
     Dosage: 150 MILLIGRAM, ONCE A DAY [150 MG (150 MG,1 IN 1 D)]
     Route: 065

REACTIONS (2)
  - Mitochondrial myopathy acquired [Unknown]
  - Muscular weakness [Unknown]
